FAERS Safety Report 5372753-X (Version None)
Quarter: 2007Q2

REPORT INFORMATION
  Report Type: 
  Country: None (occurrence: None)
  Receive Date: 20070621
  Receipt Date: 20070228
  Transmission Date: 20071010
  Serious: Yes (Other)
  Sender: FDA-Public Use
  Company Number: 34801

PATIENT
  Sex: Female

DRUGS (1)
  1. MITOMYCIN [Suspect]
     Dosage: 40MG

REACTIONS (1)
  - RASH [None]
